FAERS Safety Report 24623815 (Version 1)
Quarter: 2024Q4

REPORT INFORMATION
  Report Type: Spontaneous
  Country: US (occurrence: None)
  Receive Date: 20241114
  Receipt Date: 20241114
  Transmission Date: 20250115
  Serious: No
  Sender: Public
  Company Number: None

PATIENT
  Age: 66 Year
  Sex: Female

DRUGS (1)
  1. AMBRISENTAN [Suspect]
     Active Substance: AMBRISENTAN
     Indication: Pulmonary arterial hypertension
     Dosage: 10 MG DAILY ORAL?
     Route: 048

REACTIONS (11)
  - Nasal congestion [None]
  - Swelling [None]
  - Flushing [None]
  - Headache [None]
  - Constipation [None]
  - Abdominal discomfort [None]
  - Productive cough [None]
  - Dyspnoea [None]
  - Wheezing [None]
  - Rash [None]
  - Therapy interrupted [None]

NARRATIVE: CASE EVENT DATE: 20241114
